FAERS Safety Report 9642758 (Version 1)
Quarter: 2013Q4

REPORT INFORMATION
  Report Type: Spontaneous
  Country: US (occurrence: US)
  Receive Date: 20131024
  Receipt Date: 20131024
  Transmission Date: 20140711
  Serious: Yes (Hospitalization)
  Sender: FDA-Public Use
  Company Number: US-SA-2013SA106566

PATIENT
  Age: 46 Year
  Sex: Female

DRUGS (2)
  1. LANTUS [Suspect]
     Route: 058
  2. NOVOLOG [Suspect]
     Route: 065

REACTIONS (2)
  - Diabetic ketoacidosis [Unknown]
  - Glycosylated haemoglobin increased [Unknown]
